FAERS Safety Report 9108283 (Version 1)
Quarter: 2013Q1

REPORT INFORMATION
  Report Type: Spontaneous
  Country: BR (occurrence: BR)
  Receive Date: 20130222
  Receipt Date: 20130222
  Transmission Date: 20140127
  Serious: Yes (Death)
  Sender: FDA-Public Use
  Company Number: PHHY2012BR072361

PATIENT
  Sex: Female

DRUGS (2)
  1. RASILEZ [Suspect]
     Dosage: 300 MG, QD
  2. DIOVAN [Suspect]
     Dosage: 320 MG, UNK

REACTIONS (2)
  - Death [Fatal]
  - Malaise [Unknown]
